FAERS Safety Report 9997427 (Version 1)
Quarter: 2014Q1

REPORT INFORMATION
  Report Type: Spontaneous
  Country: US (occurrence: None)
  Receive Date: 20140304
  Receipt Date: 20140304
  Transmission Date: 20141002
  Serious: Yes (Other)
  Sender: FDA-Public Use
  Company Number: RB-58667-2013

PATIENT
  Sex: Male

DRUGS (5)
  1. SUBOXONE 8 MG [Suspect]
     Indication: DRUG DEPENDENCE
     Dosage: FILM COATED SL FORMULATION TRPL
     Route: 064
     Dates: start: 20121203, end: 20130109
  2. SUBUTEX 8 MG [Suspect]
     Indication: DRUG DEPENDENCE
     Route: 064
     Dates: start: 20130110, end: 201305
  3. SUBOXONE 8 MG [Suspect]
     Indication: DRUG DEPENDENCE
     Route: 064
     Dates: start: 201305, end: 201306
  4. BUPRENORPHINE 8 MG [Suspect]
     Indication: DRUG DEPENDENCE
     Route: 064
     Dates: start: 201306, end: 20130912
  5. NICOTINE (NONE) [Suspect]
     Indication: NICOTINE DEPENDENCE
     Dosage: MOTHER SMOKES 1/2 PACK CIGARETTES PER DAY TRANSPLACENTAL
     Dates: start: 20121128, end: 20130912

REACTIONS (4)
  - Foetal exposure during pregnancy [None]
  - Exposure during breast feeding [None]
  - Tremor [None]
  - Drug withdrawal syndrome neonatal [None]
